FAERS Safety Report 13690423 (Version 1)
Quarter: 2017Q2

REPORT INFORMATION
  Report Type: Spontaneous
  Country: US (occurrence: US)
  Receive Date: 20170625
  Receipt Date: 20170625
  Transmission Date: 20170830
  Serious: Yes (Life-Threatening, Hospitalization, Other)
  Sender: FDA-Public Use
  Company Number: None

PATIENT
  Age: 66 Year
  Sex: Male
  Weight: 76.27 kg

DRUGS (13)
  1. GABAPENTIN. [Concomitant]
     Active Substance: GABAPENTIN
  2. LACTULOSE. [Concomitant]
     Active Substance: LACTULOSE
  3. PAXIL [Concomitant]
     Active Substance: PAROXETINE HYDROCHLORIDE
  4. VITAMEN D-3 [Concomitant]
  5. CARVEDILOL. [Concomitant]
     Active Substance: CARVEDILOL
  6. VIVITROL [Suspect]
     Active Substance: NALTREXONE
     Route: 048
     Dates: start: 20170513, end: 20170513
  7. LOW DOSE ASPIRIN [Concomitant]
     Active Substance: ASPIRIN
  8. LANTANOPROST [Concomitant]
     Active Substance: LATANOPROST
  9. ADVIL [Concomitant]
     Active Substance: IBUPROFEN
  10. TAMSULOSIN [Concomitant]
     Active Substance: TAMSULOSIN
  11. XIFAXAN [Concomitant]
     Active Substance: RIFAXIMIN
  12. PSYLLIUM HUSK [Concomitant]
     Active Substance: PSYLLIUM HUSK
  13. ALOE VERA [Concomitant]
     Active Substance: ALOE VERA LEAF

REACTIONS (3)
  - Aggression [None]
  - Dyskinesia [None]
  - Feeling abnormal [None]

NARRATIVE: CASE EVENT DATE: 20170513
